FAERS Safety Report 4958182-9 (Version None)
Quarter: 2006Q1

REPORT INFORMATION
  Report Type: 
  Country: None (occurrence: None)
  Receive Date: 20060330
  Receipt Date: 20060320
  Transmission Date: 20060701
  Serious: Yes (Hospitalization)
  Sender: FDA-Public Use
  Company Number: 2006GB00482

PATIENT
  Sex: Female

DRUGS (4)
  1. QUETIAPINE [Suspect]
     Route: 048
     Dates: end: 20060214
  2. TRAZODONE HCL [Suspect]
     Route: 048
     Dates: end: 20060214
  3. LACTULOSE [Concomitant]
     Indication: CONSTIPATION
     Route: 048
  4. FUROSEMIDE [Concomitant]
     Indication: OEDEMA
     Route: 048

REACTIONS (4)
  - JAUNDICE CHOLESTATIC [None]
  - LIVER FUNCTION TEST ABNORMAL [None]
  - URINE OUTPUT DECREASED [None]
  - VOMITING [None]
